FAERS Safety Report 8102918-5 (Version None)
Quarter: 2012Q1

REPORT INFORMATION
  Report Type: 
  Country: None (occurrence: None)
  Receive Date: 20120127
  Receipt Date: 20120120
  Transmission Date: 20120608
  Serious: Yes (Life-Threatening, Hospitalization, Other)
  Sender: FDA-Public Use
  Company Number: CL-375-2012

PATIENT
  Age: 53 Year
  Sex: Female

DRUGS (2)
  1. POSACONAZOLE [Suspect]
  2. CIPROFLOXACIN [Suspect]

REACTIONS (2)
  - LONG QT SYNDROME [None]
  - DRUG INTERACTION [None]
